FAERS Safety Report 10408416 (Version 1)
Quarter: 2014Q3

REPORT INFORMATION
  Report Type: Spontaneous
  Country: US (occurrence: None)
  Receive Date: 20140825
  Receipt Date: 20140825
  Transmission Date: 20150326
  Serious: Yes (Life-Threatening)
  Sender: FDA-Public Use
  Company Number: None

PATIENT
  Age: 54 Year
  Sex: Male
  Weight: 95.26 kg

DRUGS (6)
  1. VITAMIN B COMPLEX [Concomitant]
     Active Substance: CYANOCOBALAMIN\DEXPANTHENOL\NIACINAMIDE\PYRIDOXINE HYDROCHLORIDE\RIBOFLAVIN 5^-PHOSPHATE SODIUM\THIAMINE HYDROCHLORIDE\VITAMIN B COMPLEX
  2. VYTORIN [Concomitant]
     Active Substance: EZETIMIBE\SIMVASTATIN
  3. VASOTEC [Suspect]
     Active Substance: ENALAPRIL MALEATE
  4. ASPIRIN. [Concomitant]
     Active Substance: ASPIRIN
  5. INSULIN [Concomitant]
     Active Substance: INSULIN NOS
  6. NOVOLOG [Suspect]
     Active Substance: INSULIN ASPART
     Indication: DIABETES MELLITUS
     Dosage: 100 UNITS/ML, (PUMP INFUSION) CONTINUOUS, SUBCUTANEOUS INFUSION
     Route: 058
     Dates: start: 20140721, end: 20140723

REACTIONS (8)
  - Poisoning [None]
  - Fatigue [None]
  - Blood glucose increased [None]
  - Pyrexia [None]
  - Lethargy [None]
  - Pain [None]
  - Disorientation [None]
  - Blood disorder [None]

NARRATIVE: CASE EVENT DATE: 20140721
